FAERS Safety Report 12445998 (Version 1)
Quarter: 2016Q2

REPORT INFORMATION
  Report Type: Spontaneous
  Country: US (occurrence: US)
  Receive Date: 20160608
  Receipt Date: 20160608
  Transmission Date: 20160815
  Serious: No
  Sender: FDA-Public Use
  Company Number: US-JNJFOC-20160527821

PATIENT
  Age: 58 Year
  Sex: Female
  Weight: 46.27 kg

DRUGS (2)
  1. TYLENOL 8 HR ARTHRITIS PAIN [Suspect]
     Active Substance: ACETAMINOPHEN
     Indication: CANCER PAIN
     Dosage: 1X
     Route: 048
     Dates: start: 20160527, end: 20160527
  2. TYLENOL 8 HR ARTHRITIS PAIN [Suspect]
     Active Substance: ACETAMINOPHEN
     Indication: PAIN
     Dosage: 1X
     Route: 048
     Dates: start: 20160527, end: 20160527

REACTIONS (5)
  - Product use issue [Unknown]
  - Product label issue [Unknown]
  - Off label use [Unknown]
  - Therapeutic response unexpected [Unknown]
  - Wrong technique in product usage process [Unknown]
